FAERS Safety Report 6366730-X (Version None)
Quarter: 2009Q3

REPORT INFORMATION
  Report Type: 
  Country: None (occurrence: None)
  Receive Date: 20090921
  Receipt Date: 20090916
  Transmission Date: 20100115
  Serious: Yes (Life-Threatening, Hospitalization, Disabling, Other)
  Sender: FDA-Public Use
  Company Number: GB-ASTRAZENECA-2009SE13594

PATIENT
  Age: 66 Year
  Sex: Male

DRUGS (8)
  1. BUPIVACAINE [Suspect]
     Indication: INDUCTION OF ANAESTHESIA
     Route: 008
  2. BUPIVACAINE [Suspect]
     Route: 053
  3. TEMAZEPAM [Concomitant]
     Indication: PREMEDICATION
  4. ISOFLURANE [Concomitant]
     Indication: INDUCTION AND MAINTENANCE OF ANAESTHESIA
  5. VECURONIUM BROMIDE [Concomitant]
     Indication: INDUCTION AND MAINTENANCE OF ANAESTHESIA
  6. REMIFENTANIL [Concomitant]
     Indication: MAINTENANCE OF ANAESTHESIA
  7. GLYCOPYRROLATE [Concomitant]
     Indication: NEUROMUSCULAR BLOCKADE REVERSAL
  8. NEOSTIGMINE [Concomitant]
     Indication: NEUROMUSCULAR BLOCKADE REVERSAL

REACTIONS (5)
  - INCORRECT ROUTE OF DRUG ADMINISTRATION [None]
  - LOSS OF CONSCIOUSNESS [None]
  - PARALYSIS [None]
  - PUPIL FIXED [None]
  - RESPIRATION ABNORMAL [None]
